FAERS Safety Report 25884454 (Version 2)
Quarter: 2025Q4

REPORT INFORMATION
  Report Type: Spontaneous
  Country: CO (occurrence: CO)
  Receive Date: 20251006
  Receipt Date: 20251007
  Transmission Date: 20260118
  Serious: Yes (Hospitalization, Other)
  Sender: SANDOZ
  Company Number: CO-002147023-NVSC2025CO147619

PATIENT
  Age: 40 Year
  Sex: Male

DRUGS (7)
  1. MOXIFLOXACIN [Suspect]
     Active Substance: MOXIFLOXACIN
     Indication: Endophthalmitis
     Dosage: UNK, Q2H (EVERY 2 HOURS)
     Route: 065
  2. NEOMYCIN AND POLYMYXIN B SULFATES AND DEXAMETHASONE [Suspect]
     Active Substance: DEXAMETHASONE\NEOMYCIN SULFATE\POLYMYXIN B SULFATE
     Indication: Periorbital cellulitis
     Dosage: UNK, Q6H
     Route: 065
  3. NEOMYCIN AND POLYMYXIN B SULFATES AND DEXAMETHASONE [Suspect]
     Active Substance: DEXAMETHASONE\NEOMYCIN SULFATE\POLYMYXIN B SULFATE
     Indication: Endophthalmitis
  4. CEFTAZIDIME [Concomitant]
     Active Substance: CEFTAZIDIME
     Indication: Endophthalmitis
     Dosage: 1 G, Q8H
     Route: 042
  5. LINEZOLID [Concomitant]
     Active Substance: LINEZOLID
     Indication: Periorbital cellulitis
     Dosage: UNK
     Route: 065
  6. VANCOMYCIN [Concomitant]
     Active Substance: VANCOMYCIN
     Indication: Endophthalmitis
     Dosage: 1 G, Q12H
     Route: 042
  7. VANCOMYCIN [Concomitant]
     Active Substance: VANCOMYCIN
     Indication: Periorbital cellulitis

REACTIONS (18)
  - Mass [Unknown]
  - Vitritis [Unknown]
  - Visual acuity reduced [Unknown]
  - Fibrosis [Unknown]
  - Conjunctival oedema [Unknown]
  - Eyelid oedema [Unknown]
  - Iris adhesions [Unknown]
  - Corneal oedema [Unknown]
  - Keratic precipitates [Unknown]
  - Anterior chamber fibrin [Unknown]
  - Choroidal dystrophy [Unknown]
  - Retinal thickening [Unknown]
  - Eye movement disorder [Unknown]
  - Vitreous adhesions [Unknown]
  - Klebsiella infection [Unknown]
  - Vitreous abscess [Unknown]
  - Intraocular pressure increased [Unknown]
  - Drug ineffective [Unknown]
